FAERS Safety Report 14281125 (Version 11)
Quarter: 2019Q3

REPORT INFORMATION
  Report Type: Spontaneous
  Country: FR (occurrence: FR)
  Receive Date: 20171213
  Receipt Date: 20190909
  Transmission Date: 20191004
  Serious: Yes (Other)
  Sender: FDA-Public Use
  Company Number: FR-JNJFOC-20171204940

PATIENT
  Age: 35 Year
  Sex: Male

DRUGS (16)
  1. GONADOTROPHINE [Concomitant]
     Indication: PRODUCT USED FOR UNKNOWN INDICATION
     Route: 030
  2. OXYCODONE HYDROCHLORIDE. [Suspect]
     Active Substance: OXYCODONE HYDROCHLORIDE
     Route: 065
  3. BUPRENORPHINE HYDROCHLORIDE W/NALOXONE HCL [Suspect]
     Active Substance: BUPRENORPHINE HYDROCHLORIDE\NALOXONE HYDROCHLORIDE
     Dosage: 2MG DECREASE OF DOSE
     Route: 065
  4. PENTOSAN POLYSULFATE SODIUM [Concomitant]
     Active Substance: PENTOSAN POLYSULFATE SODIUM
     Indication: PRODUCT USED FOR UNKNOWN INDICATION
     Route: 065
  5. HYDROCORTISONE. [Concomitant]
     Active Substance: HYDROCORTISONE
     Indication: GLUCOCORTICOID DEFICIENCY
     Route: 065
  6. ZOPIDEM [Concomitant]
     Active Substance: ZOLPIDEM TARTRATE
     Dosage: IN THE EVENING
     Route: 065
  7. BUPRENORPHINE HYDROCHLORIDE W/NALOXONE HCL [Suspect]
     Active Substance: BUPRENORPHINE HYDROCHLORIDE\NALOXONE HYDROCHLORIDE
     Indication: DRUG DEPENDENCE
     Route: 065
  8. ZOPIDEM [Concomitant]
     Active Substance: ZOLPIDEM TARTRATE
     Route: 065
  9. DUROGESIC [Suspect]
     Active Substance: FENTANYL
     Indication: PELVIC PAIN
     Route: 050
  10. OXYCODONE HYDROCHLORIDE. [Suspect]
     Active Substance: OXYCODONE HYDROCHLORIDE
     Indication: PRODUCT USED FOR UNKNOWN INDICATION
     Route: 065
  11. BUPRENORPHINE HYDROCHLORIDE W/NALOXONE HCL [Suspect]
     Active Substance: BUPRENORPHINE HYDROCHLORIDE\NALOXONE HYDROCHLORIDE
     Dosage: STABLE DOSE
     Route: 065
  12. FENTANYL. [Suspect]
     Active Substance: FENTANYL
     Indication: PELVIC PAIN
     Route: 050
  13. VENLAFAXINE [Concomitant]
     Active Substance: VENLAFAXINE HYDROCHLORIDE
     Indication: PRODUCT USED FOR UNKNOWN INDICATION
     Route: 065
  14. MENOTROPIN [Concomitant]
     Active Substance: MENOTROPINS
     Indication: PRODUCT USED FOR UNKNOWN INDICATION
     Route: 065
  15. BUPRENORPHINE HYDROCHLORIDE W/NALOXONE HCL [Suspect]
     Active Substance: BUPRENORPHINE HYDROCHLORIDE\NALOXONE HYDROCHLORIDE
     Dosage: INCREASED UNTIL A STABLE DOSE OF 22 MG
     Route: 065
  16. PREGABALIN. [Concomitant]
     Active Substance: PREGABALIN
     Indication: PRODUCT USED FOR UNKNOWN INDICATION
     Route: 065

REACTIONS (21)
  - Drug dependence [Recovering/Resolving]
  - Asthenia [Not Recovered/Not Resolved]
  - Gonadotrophin deficiency [Not Recovered/Not Resolved]
  - Feeling cold [Not Recovered/Not Resolved]
  - Product use in unapproved indication [Unknown]
  - Overdose [Unknown]
  - Off label use [Unknown]
  - Hypopituitarism [Unknown]
  - Cortisol deficiency [Unknown]
  - Pain [Unknown]
  - Fatigue [Not Recovered/Not Resolved]
  - Inappropriate schedule of product administration [Unknown]
  - Hyperhidrosis [Not Recovered/Not Resolved]
  - Adrenocorticotropic hormone deficiency [Not Recovered/Not Resolved]
  - Headache [Not Recovered/Not Resolved]
  - Thermophobia [Not Recovered/Not Resolved]
  - Disturbance in attention [Not Recovered/Not Resolved]
  - Hypogonadism [Not Recovered/Not Resolved]
  - Condition aggravated [Not Recovered/Not Resolved]
  - Memory impairment [Not Recovered/Not Resolved]
  - Libido decreased [Not Recovered/Not Resolved]
